FAERS Safety Report 15750216 (Version 1)
Quarter: 2018Q4

REPORT INFORMATION
  Report Type: Report from Study
  Country: US (occurrence: US)
  Receive Date: 20181221
  Receipt Date: 20181221
  Transmission Date: 20190205
  Serious: Yes (Death, Hospitalization, Other)
  Sender: FDA-Public Use
  Company Number: US-ROCHE-2186943

PATIENT
  Age: 80 Year
  Sex: Female
  Weight: 50.3 kg

DRUGS (5)
  1. ATEZOLIZUMAB. [Suspect]
     Active Substance: ATEZOLIZUMAB
     Indication: CHOLANGIOCARCINOMA
     Dosage: DATE OF LAST DOSE OF ATEZOLIZUMAB 1680 MG ON 10/AUG//2018
     Route: 042
     Dates: start: 20180727
  2. COBIMETINIB. [Suspect]
     Active Substance: COBIMETINIB
     Indication: CHOLANGIOCARCINOMA
     Dosage: DATE OF LAST DOSE OF COBIMETINIB 570 MG ON 15/AUG//2018
     Route: 048
     Dates: start: 20180728
  3. ATEZOLIZUMAB. [Suspect]
     Active Substance: ATEZOLIZUMAB
     Indication: BILIARY NEOPLASM
  4. ATEZOLIZUMAB. [Suspect]
     Active Substance: ATEZOLIZUMAB
     Indication: GASTROINTESTINAL CARCINOMA
     Route: 042
     Dates: start: 20180629
  5. COBIMETINIB. [Suspect]
     Active Substance: COBIMETINIB
     Indication: BILIARY NEOPLASM

REACTIONS (7)
  - Disease progression [Fatal]
  - Aspartate aminotransferase increased [Not Recovered/Not Resolved]
  - Hypercalcaemia [Not Recovered/Not Resolved]
  - Lymphocyte count decreased [Unknown]
  - Encephalopathy [Not Recovered/Not Resolved]
  - Leukocytosis [Unknown]
  - Hyperkalaemia [Unknown]

NARRATIVE: CASE EVENT DATE: 20180823
